FAERS Safety Report 20289101 (Version 1)
Quarter: 2022Q1

REPORT INFORMATION
  Report Type: Spontaneous
  Country: TW (occurrence: TW)
  Receive Date: 20220104
  Receipt Date: 20220104
  Transmission Date: 20220423
  Serious: Yes (Disabling)
  Sender: FDA-Public Use
  Company Number: TW-LUPIN PHARMACEUTICALS INC.-2021-26064

PATIENT
  Age: 65 Year
  Sex: Male

DRUGS (7)
  1. RIFAMPIN [Suspect]
     Active Substance: RIFAMPIN
     Indication: Lepromatous leprosy
     Dosage: 300 MILLIGRAM, QD
     Route: 065
  2. RIFAMPIN [Suspect]
     Active Substance: RIFAMPIN
     Dosage: 900 MILLIGRAM, QD
     Route: 065
  3. MOXIFLOXACIN [Suspect]
     Active Substance: MOXIFLOXACIN
     Indication: Neuropathic arthropathy
     Dosage: 400 MILLIGRAM, QD
     Route: 065
  4. LEVOFLOXACIN [Suspect]
     Active Substance: LEVOFLOXACIN
     Indication: Lepromatous leprosy
     Dosage: 750 MILLIGRAM, QD
     Route: 048
  5. DAPSONE [Concomitant]
     Active Substance: DAPSONE
     Indication: Leprosy
     Dosage: UNK
     Route: 065
     Dates: start: 1965, end: 1967
  6. CLOFAZIMINE [Concomitant]
     Active Substance: CLOFAZIMINE
     Indication: Lepromatous leprosy
     Dosage: 100 MILLIGRAM, QD
     Route: 048
  7. MINOCYCLINE [Concomitant]
     Active Substance: MINOCYCLINE HYDROCHLORIDE
     Indication: Lepromatous leprosy
     Dosage: 100 MILLIGRAM, QD
     Route: 065

REACTIONS (1)
  - Drug ineffective [Unknown]
